FAERS Safety Report 21197252 (Version 1)
Quarter: 2022Q3

REPORT INFORMATION
  Report Type: Spontaneous
  Country: US (occurrence: US)
  Receive Date: 20220810
  Receipt Date: 20220810
  Transmission Date: 20221027
  Serious: No
  Sender: FDA-Public Use
  Company Number: US-SA-SAC20220728001879

PATIENT
  Age: 61 Year
  Sex: Female

DRUGS (1)
  1. DUPIXENT [Suspect]
     Active Substance: DUPILUMAB
     Dosage: 300MG, OTHER
     Route: 058

REACTIONS (10)
  - Injection site warmth [Unknown]
  - Oropharyngeal pain [Unknown]
  - Throat irritation [Unknown]
  - Fatigue [Unknown]
  - Dyspnoea [Unknown]
  - Injection site inflammation [Unknown]
  - Injection site dryness [Unknown]
  - Injection site exfoliation [Unknown]
  - Injection site erythema [Unknown]
  - Drug ineffective [Unknown]

NARRATIVE: CASE EVENT DATE: 20220726
